FAERS Safety Report 10866199 (Version 1)
Quarter: 2015Q1

REPORT INFORMATION
  Report Type: Spontaneous
  Country: US (occurrence: None)
  Receive Date: 20150219
  Receipt Date: 20150219
  Transmission Date: 20150721
  Serious: No
  Sender: FDA-Public Use
  Company Number: None

PATIENT
  Age: 66 Year
  Sex: Female
  Weight: 72.58 kg

DRUGS (1)
  1. TAMIFLU [Suspect]
     Active Substance: OSELTAMIVIR PHOSPHATE
     Indication: INFLUENZA
     Dosage: 1 PILL TWICE DAILY TAKEN BY MOUTH
     Route: 048
     Dates: start: 20150214, end: 20150218

REACTIONS (8)
  - Confusional state [None]
  - Headache [None]
  - Palpitations [None]
  - Insomnia [None]
  - Nausea [None]
  - Nightmare [None]
  - Dysgeusia [None]
  - Disturbance in attention [None]

NARRATIVE: CASE EVENT DATE: 20150218
